FAERS Safety Report 22036005 (Version 1)
Quarter: 2023Q1

REPORT INFORMATION
  Report Type: Spontaneous
  Country: CA (occurrence: None)
  Receive Date: 20230221
  Receipt Date: 20230221
  Transmission Date: 20230417
  Serious: Yes (Other)
  Sender: FDA-Public Use
  Company Number: None

PATIENT
  Age: 43 Year
  Sex: Male
  Weight: 67.5 kg

DRUGS (3)
  1. CHLORINE DIOXIDE [Suspect]
     Active Substance: CHLORINE DIOXIDE
     Indication: Staphylococcal infection
     Dosage: OTHER QUANTITY : 5 DROP(S);?OTHER FREQUENCY : EVERY HOUR;?
     Route: 048
  2. CHLORINE DIOXIDE [Concomitant]
     Active Substance: CHLORINE DIOXIDE
  3. TYLENOL WITH CODEINE [Concomitant]
     Active Substance: ACETAMINOPHEN\CODEINE PHOSPHATE

REACTIONS (3)
  - Gastric disorder [None]
  - Product use in unapproved indication [None]
  - Therapy change [None]

NARRATIVE: CASE EVENT DATE: 20230202
